FAERS Safety Report 9342878 (Version 1)
Quarter: 2013Q2

REPORT INFORMATION
  Report Type: Spontaneous
  Country: US (occurrence: US)
  Receive Date: 20130611
  Receipt Date: 20130611
  Transmission Date: 20140414
  Serious: Yes (Hospitalization)
  Sender: FDA-Public Use
  Company Number: US-JNJFOC-20130601589

PATIENT
  Sex: Male

DRUGS (3)
  1. INVOKANA [Suspect]
     Indication: DIABETES MELLITUS
     Route: 048
     Dates: start: 2013, end: 2013
  2. METFORMIN [Concomitant]
  3. ANTI-DIABETIC AGENT [Concomitant]

REACTIONS (4)
  - Syncope [Recovered/Resolved]
  - Fall [Recovered/Resolved]
  - Ankle fracture [Unknown]
  - Dehydration [Unknown]
